FAERS Safety Report 16751964 (Version 1)
Quarter: 2019Q3

REPORT INFORMATION
  Report Type: Spontaneous
  Country: CN (occurrence: CN)
  Receive Date: 20190828
  Receipt Date: 20190828
  Transmission Date: 20191005
  Serious: Yes (Other)
  Sender: FDA-Public Use
  Company Number: PHHY2019CN197481

PATIENT

DRUGS (1)
  1. ZYKADIA [Suspect]
     Active Substance: CERITINIB
     Indication: LUNG NEOPLASM MALIGNANT
     Dosage: 3 DF, QD (WITH MEALS)
     Route: 048
     Dates: start: 20190813

REACTIONS (3)
  - Headache [Not Recovered/Not Resolved]
  - Brain oedema [Unknown]
  - Pain [Unknown]
